FAERS Safety Report 20993048 (Version 1)
Quarter: 2022Q2

REPORT INFORMATION
  Report Type: Spontaneous
  Country: US (occurrence: US)
  Receive Date: 20220622
  Receipt Date: 20220622
  Transmission Date: 20220720
  Serious: No
  Sender: FDA-Public Use
  Company Number: US-TEVA-2022-US-2046840

PATIENT
  Sex: Female

DRUGS (1)
  1. DEXTROAMPHET SACCHARAT, AMPHET ASPARTATE, DEXTROAMPHET SULFATE AND AMP [Suspect]
     Active Substance: AMPHETAMINE ASPARTATE\AMPHETAMINE SULFATE\DEXTROAMPHETAMINE SACCHARATE\DEXTROAMPHETAMINE SULFATE
     Indication: Product used for unknown indication
     Dosage: EXTENDED/SUSTAINED RELEASE
     Route: 065

REACTIONS (9)
  - Feeling abnormal [Unknown]
  - Agitation [Unknown]
  - Eye irritation [Unknown]
  - Fatigue [Unknown]
  - Mood altered [Unknown]
  - Hypersensitivity [Unknown]
  - Nightmare [Unknown]
  - Therapeutic response shortened [Unknown]
  - Product substitution issue [Unknown]
